FAERS Safety Report 15901173 (Version 1)
Quarter: 2019Q1

REPORT INFORMATION
  Report Type: Spontaneous
  Country: FR (occurrence: FR)
  Receive Date: 20190201
  Receipt Date: 20190201
  Transmission Date: 20190417
  Serious: Yes (Hospitalization)
  Sender: FDA-Public Use
  Company Number: FR-TEVA-2019-FR-1006503

PATIENT
  Age: 15 Year
  Sex: Male
  Weight: 58 kg

DRUGS (18)
  1. DAUNORUBICINE [Suspect]
     Active Substance: DAUNORUBICIN
     Route: 065
     Dates: start: 20060618, end: 20060701
  2. TIENAM [Concomitant]
     Active Substance: CILASTATIN SODIUM\IMIPENEM
  3. ZOPHREN [Concomitant]
     Active Substance: ONDANSETRON
  4. AZANTAC [Concomitant]
     Active Substance: RANITIDINE HYDROCHLORIDE
  5. VINCRISTINE [Suspect]
     Active Substance: VINCRISTINE
     Route: 065
     Dates: start: 20060618, end: 20060701
  6. AMIKLIN [Concomitant]
     Active Substance: AMIKACIN SULFATE
  7. FORTUM [Concomitant]
     Active Substance: CEFTAZIDIME
  8. BACTRIM [Concomitant]
     Active Substance: SULFAMETHOXAZOLE\TRIMETHOPRIM
  9. AMBISOME [Suspect]
     Active Substance: AMPHOTERICIN B
     Route: 065
     Dates: end: 20060818
  10. FLAGYL [Suspect]
     Active Substance: METRONIDAZOLE\METRONIDAZOLE HYDROCHLORIDE
     Route: 065
     Dates: start: 20060710, end: 20060902
  11. CIFLOX [Concomitant]
     Active Substance: CIPROFLOXACIN
  12. VITAMIN B1 [Concomitant]
     Active Substance: THIAMINE HYDROCHLORIDE
  13. INEXIUM [Concomitant]
     Active Substance: ESOMEPRAZOLE
  14. VANCOMYCINE [Concomitant]
     Active Substance: VANCOMYCIN
  15. VITAMIN B6 [Concomitant]
     Active Substance: PYRIDOXINE HYDROCHLORIDE
  16. ARACYTINE [Suspect]
     Active Substance: CYTARABINE
     Route: 065
     Dates: end: 20060830
  17. ASPARAGINASE [Suspect]
     Active Substance: ASPARAGINASE
     Route: 042
     Dates: start: 20060623, end: 20060629
  18. LOXEN [NICARDIPINE HYDROCHLORIDE] [Concomitant]
     Active Substance: NICARDIPINE HYDROCHLORIDE

REACTIONS (1)
  - Neuropathy peripheral [Recovering/Resolving]

NARRATIVE: CASE EVENT DATE: 20060715
